FAERS Safety Report 8067485-3 (Version None)
Quarter: 2012Q1

REPORT INFORMATION
  Report Type: 
  Country: None (occurrence: None)
  Receive Date: 20120124
  Receipt Date: 20120118
  Transmission Date: 20120608
  Serious: No
  Sender: FDA-Public Use
  Company Number: US-PFIZER INC-2012014750

PATIENT
  Age: 46 Year
  Sex: Female
  Weight: 102.5 kg

DRUGS (7)
  1. CARDIZEM [Concomitant]
     Indication: HYPERTENSION
     Dosage: 240 MG, 1X/DAY
  2. PREMPRO [Suspect]
     Indication: HOT FLUSH
     Dosage: UNK,1X/DAY
     Route: 048
     Dates: start: 20111001
  3. ACTOS [Concomitant]
     Indication: DIABETES MELLITUS
     Dosage: 45 MG, UNK
  4. GLUCOTROL [Concomitant]
     Indication: DIABETES MELLITUS
     Dosage: 10 MG, 2X/DAY
  5. JANUVIA [Concomitant]
     Indication: DIABETES MELLITUS
     Dosage: 100 MG, UNK
  6. ZOCOR [Concomitant]
     Indication: BLOOD CHOLESTEROL INCREASED
     Dosage: 20 MG, UNK
  7. PRINIVIL [Concomitant]
     Indication: HYPERTENSION
     Dosage: 40 MG, UNK

REACTIONS (1)
  - FEELING COLD [None]
